FAERS Safety Report 22527629 (Version 2)
Quarter: 2023Q2

REPORT INFORMATION
  Report Type: Spontaneous
  Country: US (occurrence: US)
  Receive Date: 20230606
  Receipt Date: 20230610
  Transmission Date: 20230721
  Serious: Yes (Death, Hospitalization)
  Sender: FDA-Public Use
  Company Number: US-002147023-NVSC2023US128748

PATIENT
  Age: 64 Year
  Sex: Male
  Weight: 76.74 kg

DRUGS (2)
  1. PLUVICTO [Suspect]
     Active Substance: LUTETIUM LU-177 VIPIVOTIDE TETRAXETAN
     Indication: Hormone-refractory prostate cancer
     Dosage: 200 MCI, Q6 WEEKS
     Route: 042
     Dates: start: 20221117
  2. PLUVICTO [Suspect]
     Active Substance: LUTETIUM LU-177 VIPIVOTIDE TETRAXETAN
     Dosage: UNK (20 PERCENT DOSE REDUCTION IN INITIAL DOSE))
     Route: 065
     Dates: start: 20230324, end: 20230330

REACTIONS (10)
  - Death [Fatal]
  - Obstruction [Unknown]
  - Septic shock [Unknown]
  - Bacterial infection [Unknown]
  - Gastrointestinal infection [Unknown]
  - Diarrhoea [Unknown]
  - Dehydration [Unknown]
  - Urinary tract infection [Unknown]
  - Blood urea increased [Unknown]
  - Blood creatinine increased [Unknown]

NARRATIVE: CASE EVENT DATE: 20221201
